FAERS Safety Report 9178025 (Version 2)
Quarter: 2013Q2

REPORT INFORMATION
  Report Type: Spontaneous
  Country: US (occurrence: US)
  Receive Date: 20130321
  Receipt Date: 20130501
  Transmission Date: 20140414
  Serious: Yes (Other)
  Sender: FDA-Public Use
  Company Number: US-ASTRAZENECA-2013SE16692

PATIENT
  Age: 74 Year
  Sex: Female
  Weight: 77.1 kg

DRUGS (4)
  1. SYMBICORT [Suspect]
     Indication: ASTHMA
     Dosage: 80/4.5, 2 PUFFS BID
     Route: 055
  2. ATENOLOL [Concomitant]
     Indication: HYPERTENSION
     Dosage: DAILY
     Route: 048
  3. HCTZ [Concomitant]
     Indication: HYPERTENSION
     Dosage: DAILY
     Route: 048
  4. ADVAIR [Concomitant]

REACTIONS (5)
  - Pneumonia [Recovered/Resolved]
  - Chest discomfort [Unknown]
  - Sinusitis [Recovered/Resolved]
  - Anxiety [Unknown]
  - Intentional drug misuse [Unknown]
